FAERS Safety Report 13510611 (Version 2)
Quarter: 2017Q2

REPORT INFORMATION
  Report Type: Spontaneous
  Country: FR (occurrence: FR)
  Receive Date: 20170503
  Receipt Date: 20170517
  Transmission Date: 20170830
  Serious: Yes (Other)
  Sender: FDA-Public Use
  Company Number: FR-JNJFOC-20170426337

PATIENT
  Age: 54 Year
  Sex: Female
  Weight: 53 kg

DRUGS (1)
  1. STELARA [Suspect]
     Active Substance: USTEKINUMAB
     Indication: PSORIASIS
     Route: 058
     Dates: start: 201302

REACTIONS (1)
  - Thyroiditis acute [Recovering/Resolving]

NARRATIVE: CASE EVENT DATE: 20170401
